FAERS Safety Report 6666350-3 (Version None)
Quarter: 2010Q2

REPORT INFORMATION
  Report Type: 
  Country: None (occurrence: None)
  Receive Date: 20100402
  Receipt Date: 20100326
  Transmission Date: 20101027
  Serious: Yes (Hospitalization)
  Sender: FDA-Public Use
  Company Number: KR-BRISTOL-MYERS SQUIBB COMPANY-14934954

PATIENT
  Age: 60 Year
  Sex: Male

DRUGS (2)
  1. IXABEPILONE [Suspect]
     Indication: NON-SMALL CELL LUNG CANCER
     Dosage: STRENGTH:32MG/M2;RECEIVED 6 CYCLES UNTIL 07JAN2010;INITIAL DOSE:22SEP09.
     Route: 042
     Dates: start: 20100107, end: 20100107
  2. CARBOPLATIN [Suspect]
     Indication: NON-SMALL CELL LUNG CANCER
     Dosage: AUC 6 ;RECEIVED 6 CYCLES UNTIL 07JAN2010;INITIAL DOSE:22SEP09.
     Route: 042
     Dates: start: 20100107, end: 20100107

REACTIONS (1)
  - DIZZINESS [None]
